FAERS Safety Report 10332491 (Version 1)
Quarter: 2014Q3

REPORT INFORMATION
  Report Type: Spontaneous
  Country: US (occurrence: US)
  Receive Date: 20140722
  Receipt Date: 20140722
  Transmission Date: 20150326
  Serious: No
  Sender: FDA-Public Use
  Company Number: US-ASTRAZENECA-2013SE52807

PATIENT
  Sex: Male

DRUGS (1)
  1. SEROQUEL XR [Suspect]
     Active Substance: QUETIAPINE FUMARATE
     Route: 048
     Dates: start: 2011

REACTIONS (3)
  - Hyperhidrosis [Unknown]
  - Insomnia [Unknown]
  - Panic attack [Unknown]

NARRATIVE: CASE EVENT DATE: 20130712
